FAERS Safety Report 21211515 (Version 3)
Quarter: 2022Q3

REPORT INFORMATION
  Report Type: Spontaneous
  Country: JP (occurrence: JP)
  Receive Date: 20220815
  Receipt Date: 20220916
  Transmission Date: 20221027
  Serious: No
  Sender: FDA-Public Use
  Company Number: JP-GSKNCCC-Case-01550875_AE-61028

PATIENT

DRUGS (4)
  1. SOTROVIMAB [Suspect]
     Active Substance: SOTROVIMAB
     Indication: COVID-19
     Dosage: 500 MG, SINGLE
     Dates: start: 20220722, end: 20220722
  2. ASTOMIN TABLETS [Concomitant]
     Indication: Cough
     Dosage: 10 MG, FREQUENCY: 3 TIMES
     Dates: start: 20220722
  3. DEQUALINIUM CHLORIDE [Concomitant]
     Active Substance: DEQUALINIUM CHLORIDE
     Indication: Oropharyngeal pain
     Dosage: 1 DF, FREQUENCY: 3 TIMES
     Dates: start: 20220723
  4. POVIDONE IODINE GARGLE [Concomitant]
     Indication: Oropharyngeal pain
     Dosage: UNK, FREQUENCY: AS APPROPRIATE
     Dates: start: 20220723

REACTIONS (3)
  - Infusion related reaction [Recovered/Resolved]
  - Chills [Recovered/Resolved]
  - Pyrexia [Recovered/Resolved]

NARRATIVE: CASE EVENT DATE: 20220722
